FAERS Safety Report 7130664-3 (Version None)
Quarter: 2010Q4

REPORT INFORMATION
  Report Type: 
  Country: None (occurrence: None)
  Receive Date: 20101029
  Receipt Date: 20100809
  Transmission Date: 20110411
  Serious: Yes (Hospitalization)
  Sender: FDA-Public Use
  Company Number: RO-003387

PATIENT
  Sex: Male
  Weight: 60 kg

DRUGS (7)
  1. DEGARELIX (DEGARELIX)  (240 MG, 80 MG) [Suspect]
     Indication: PROSTATE CANCER
     Dosage: 240 MG 1X SUBCUTANEOUS, 480 MG 1X/3 MONTHS SUBCUTANEOUS
     Route: 058
     Dates: start: 20091124, end: 20091124
  2. DEGARELIX (DEGARELIX)  (240 MG, 80 MG) [Suspect]
     Indication: PROSTATE CANCER
     Dosage: 240 MG 1X SUBCUTANEOUS, 480 MG 1X/3 MONTHS SUBCUTANEOUS
     Route: 058
     Dates: start: 20091222
  3. OMEPRAZOLAM [Concomitant]
  4. DIGOXIN [Concomitant]
  5. TRIMETAZIDINA [Concomitant]
  6. BISOPROLOL [Concomitant]
  7. ZOMETA [Concomitant]

REACTIONS (2)
  - ANAEMIA [None]
  - METASTASES TO BONE [None]
